FAERS Safety Report 25707243 (Version 1)
Quarter: 2025Q3

REPORT INFORMATION
  Report Type: Spontaneous
  Country: US (occurrence: US)
  Receive Date: 20250820
  Receipt Date: 20250820
  Transmission Date: 20251021
  Serious: No
  Sender: AMGEN
  Company Number: US-AMGEN-USASP2025163867

PATIENT
  Sex: Female
  Weight: 84.09 kg

DRUGS (3)
  1. OTEZLA [Suspect]
     Active Substance: APREMILAST
     Indication: Psoriasis
     Route: 065
  2. DUPIXENT [Suspect]
     Active Substance: DUPILUMAB
     Indication: Dermatitis atopic
     Route: 058
  3. ADBRY [Concomitant]
     Active Substance: TRALOKINUMAB-LDRM

REACTIONS (3)
  - Constipation [Unknown]
  - Adverse drug reaction [Unknown]
  - Psoriasis [Unknown]
